FAERS Safety Report 14150604 (Version 1)
Quarter: 2017Q4

REPORT INFORMATION
  Report Type: Other
  Country: GB (occurrence: US)
  Receive Date: 20171101
  Receipt Date: 20171101
  Transmission Date: 20180321
  Serious: Yes (Life-Threatening, Hospitalization, Other)
  Sender: FDA-Public Use
  Company Number: US-INTERNATIONAL MEDICATION SYSTEMS, LIMITED-2033001

PATIENT
  Age: 16 Year
  Sex: Male

DRUGS (1)
  1. EPINEPHRINE 100% INJECTION [Suspect]
     Active Substance: EPINEPHRINE

REACTIONS (5)
  - Accidental overdose [Recovering/Resolving]
  - Drug dispensing error [None]
  - Product preparation error [Recovering/Resolving]
  - Hypertensive crisis [Recovering/Resolving]
  - Drug administration error [None]
